FAERS Safety Report 12556232 (Version 3)
Quarter: 2021Q2

REPORT INFORMATION
  Report Type: Spontaneous
  Country: CA (occurrence: CA)
  Receive Date: 20160714
  Receipt Date: 20210421
  Transmission Date: 20210716
  Serious: Yes (Other)
  Sender: FDA-Public Use
  Company Number: CA-PFIZER INC-2015459426

PATIENT
  Age: 57 Year
  Sex: Female

DRUGS (3)
  1. XELJANZ [Suspect]
     Active Substance: TOFACITINIB CITRATE
     Indication: RHEUMATOID ARTHRITIS
     Dosage: 5 MG, 2X/DAY
     Route: 048
     Dates: start: 20151213, end: 201603
  2. XELJANZ [Suspect]
     Active Substance: TOFACITINIB CITRATE
     Dosage: 5 MG, 2X/DAY
     Route: 048
     Dates: start: 20160321, end: 201909
  3. XELJANZ [Suspect]
     Active Substance: TOFACITINIB CITRATE
     Dosage: 5 MG, 1X/DAY
     Route: 048
     Dates: start: 201603, end: 20160320

REACTIONS (13)
  - Diabetes mellitus [Not Recovered/Not Resolved]
  - Drug ineffective [Unknown]
  - Nausea [Recovered/Resolved]
  - Dyspepsia [Recovering/Resolving]
  - Headache [Recovered/Resolved]
  - Hypertension [Not Recovered/Not Resolved]
  - Diarrhoea [Recovering/Resolving]
  - Blood cholesterol increased [Not Recovered/Not Resolved]
  - Nasopharyngitis [Recovered/Resolved]
  - Oropharyngeal pain [Not Recovered/Not Resolved]
  - Carpal tunnel syndrome [Not Recovered/Not Resolved]
  - Hypoaesthesia [Recovered/Resolved]
  - Pain [Not Recovered/Not Resolved]

NARRATIVE: CASE EVENT DATE: 201512
